FAERS Safety Report 5773519-9 (Version None)
Quarter: 2008Q2

REPORT INFORMATION
  Report Type: 
  Country: None (occurrence: None)
  Receive Date: 20080616
  Receipt Date: 20080606
  Transmission Date: 20081010
  Serious: Yes (Other)
  Sender: FDA-Public Use
  Company Number: US-ROCHE-569118

PATIENT
  Sex: Female
  Weight: 68.9 kg

DRUGS (3)
  1. PEG-INTERFERON A-2A (RO 25-8310) [Suspect]
     Route: 065
     Dates: start: 20050101, end: 20050101
  2. RIBAVIRIN [Suspect]
     Route: 065
     Dates: start: 20040101, end: 20050101
  3. PEG-INTRON [Suspect]
     Route: 065
     Dates: start: 20040101, end: 20050101

REACTIONS (1)
  - BREAST CANCER IN SITU [None]
